FAERS Safety Report 8048738-1 (Version None)
Quarter: 2012Q1

REPORT INFORMATION
  Report Type: 
  Country: None (occurrence: None)
  Receive Date: 20120117
  Receipt Date: 20120109
  Transmission Date: 20120608
  Serious: Yes (Hospitalization, Other)
  Sender: FDA-Public Use
  Company Number: US-BAYER-2010-003064

PATIENT
  Age: 25 Year
  Sex: Female
  Weight: 100.68 kg

DRUGS (12)
  1. AZITHROMYCIN [Concomitant]
  2. METOPROLOL TARTRATE [Concomitant]
     Dosage: UNK
     Dates: start: 20070101
  3. IBUPROFEN [Concomitant]
     Dosage: 600 MG, EVERY 8-12 HOURS AS NEEDED
     Route: 048
  4. PROAIR HFA [Concomitant]
     Dosage: 2 PUFFS BY MOUTH EVERY 4-6 HOURS AS NEEDED
  5. RANITIDINE [Concomitant]
     Dosage: 150 MG, AT BED TIME
     Route: 048
  6. DROSPIRENONE AND ETHINYL ESTRADIOL [Suspect]
     Dosage: UNK
     Dates: start: 20080701, end: 20100101
  7. PRILOSEC [Concomitant]
     Dosage: 20 MG, 30-45 MINUTES BEFORE LUNCH
     Route: 048
  8. TUSSIN [Concomitant]
     Dosage: 4 TEASPOONFULS EVERY 6 HOURS FOR 7-10 DAYS
     Route: 048
  9. METFORMIN HCL [Concomitant]
     Dosage: 500 MG, UNK
     Route: 048
  10. ATENOLOL [Concomitant]
  11. YASMIN [Suspect]
     Dosage: UNK
     Dates: start: 20080701, end: 20100101
  12. YAZ [Suspect]
     Dosage: UNK
     Dates: start: 20080701, end: 20100101

REACTIONS (2)
  - GALLBLADDER INJURY [None]
  - CHOLECYSTITIS CHRONIC [None]
